FAERS Safety Report 5031134-9 (Version None)
Quarter: 2006Q2

REPORT INFORMATION
  Report Type: 
  Country: None (occurrence: None)
  Receive Date: 20060615
  Receipt Date: 20060601
  Transmission Date: 20061013
  Serious: Yes (Death)
  Sender: FDA-Public Use
  Company Number: GXKR2006IT03122

PATIENT
  Age: 18 Year
  Sex: Female

DRUGS (2)
  1. FLUTAMIDE [Suspect]
     Indication: ACNE
     Dosage: SEE IMAGE, ORAL
     Route: 048
  2. CONTRACEPTIVES UNS (CONTRACEPTIVES UNS) [Concomitant]

REACTIONS (12)
  - ASTHENIA [None]
  - DIARRHOEA [None]
  - ELECTROENCEPHALOGRAM ABNORMAL [None]
  - HAEMORRHAGE [None]
  - HEADACHE [None]
  - HEPATITIS CHOLESTATIC [None]
  - HYPERHIDROSIS [None]
  - LIVER TRANSPLANT [None]
  - OFF LABEL USE [None]
  - PROCEDURAL COMPLICATION [None]
  - PRURITUS [None]
  - SEPSIS [None]
